FAERS Safety Report 17717932 (Version 1)
Quarter: 2020Q2

REPORT INFORMATION
  Report Type: Report from Study
  Country: CH (occurrence: CH)
  Receive Date: 20200428
  Receipt Date: 20200428
  Transmission Date: 20200714
  Serious: Yes (Death, Hospitalization, Other)
  Sender: FDA-Public Use
  Company Number: CH-OTSUKA-2018_017227

PATIENT
  Age: 50 Year
  Sex: Female

DRUGS (2)
  1. TOLVAPTAN [Suspect]
     Active Substance: TOLVAPTAN
     Dosage: 15 MG, QD
     Route: 048
     Dates: start: 20171225, end: 20171231
  2. TOLVAPTAN [Suspect]
     Active Substance: TOLVAPTAN
     Indication: CONGENITAL CYSTIC KIDNEY DISEASE
     Dosage: 45 MG, QD
     Route: 048
     Dates: start: 20171225, end: 20171231

REACTIONS (7)
  - Condition aggravated [Unknown]
  - Respiratory failure [Fatal]
  - Cholestasis [Unknown]
  - Sepsis [Fatal]
  - Hepatic failure [Fatal]
  - Renal failure [Fatal]
  - Cholangitis [Unknown]

NARRATIVE: CASE EVENT DATE: 20180221
